FAERS Safety Report 8723779 (Version 2)
Quarter: 2013Q1

REPORT INFORMATION
  Report Type: Spontaneous
  Country: US (occurrence: US)
  Receive Date: 20120815
  Receipt Date: 20130107
  Transmission Date: 20140127
  Serious: No
  Sender: FDA-Public Use
  Company Number: US-009507513-1208USA004100

PATIENT
  Sex: Male

DRUGS (3)
  1. COSOPT [Suspect]
     Indication: GLAUCOMA
     Dosage: UNK
     Route: 047
     Dates: start: 200208
  2. COSOPT [Suspect]
     Indication: CORNEAL TRANSPLANT
  3. PREDNISOLONE [Concomitant]

REACTIONS (1)
  - Eye burns [Recovering/Resolving]
